FAERS Safety Report 8495334-8 (Version None)
Quarter: 2012Q3

REPORT INFORMATION
  Report Type: 
  Country: None (occurrence: None)
  Receive Date: 20120702
  Receipt Date: 20120702
  Transmission Date: 20120928
  Serious: Yes (Other)
  Sender: FDA-Public Use
  Company Number: None

PATIENT
  Sex: Female

DRUGS (2)
  1. NUCYNTA [Suspect]
     Indication: PAIN
     Dosage: 100 MG 4 DOSES PO
     Route: 048
     Dates: start: 20120620, end: 20120622
  2. PROZAC [Concomitant]

REACTIONS (7)
  - DEPRESSION [None]
  - COORDINATION ABNORMAL [None]
  - RESTLESSNESS [None]
  - ANXIETY [None]
  - AMNESIA [None]
  - MOOD ALTERED [None]
  - CONFUSIONAL STATE [None]
